FAERS Safety Report 9158475 (Version 3)
Quarter: 2013Q4

REPORT INFORMATION
  Report Type: Report from Study
  Country: JP (occurrence: JP)
  Receive Date: 20130312
  Receipt Date: 20131017
  Transmission Date: 20140711
  Serious: Yes (Life-Threatening, Hospitalization)
  Sender: FDA-Public Use
  Company Number: JP-AMGEN-JPNCT2013017331

PATIENT
  Age: 87 Year
  Sex: Male
  Weight: 49 kg

DRUGS (17)
  1. DARBEPOETIN ALFA [Suspect]
     Indication: NEPHROGENIC ANAEMIA
     Dosage: 60 MUG, Q2WK
     Route: 058
     Dates: start: 20101013
  2. DARBEPOETIN ALFA [Suspect]
     Dosage: 60 MUG, Q2WK
     Route: 058
     Dates: start: 20111007
  3. DARBEPOETIN ALFA [Suspect]
     Dosage: 60 MUG, QD
     Route: 058
     Dates: start: 20111206
  4. DARBEPOETIN ALFA [Suspect]
     Dosage: 60 MUG, Q2WK
     Route: 058
     Dates: start: 20111227
  5. PALNAC [Concomitant]
     Dosage: UNK
     Route: 048
  6. ARGAMATE [Concomitant]
     Dosage: UNK
     Route: 048
  7. KREMEZIN [Concomitant]
     Indication: GLOMERULONEPHRITIS CHRONIC
     Dosage: UNK
     Route: 048
  8. WARFARIN [Concomitant]
     Dosage: UNK
     Route: 048
  9. BLOPRESS [Concomitant]
     Indication: GLOMERULONEPHRITIS CHRONIC
     Dosage: UNK
     Route: 048
  10. MAGLAX [Concomitant]
     Dosage: UNK
     Route: 048
  11. SENNOSIDE                          /00571901/ [Concomitant]
     Dosage: UNK
     Route: 048
  12. CALTAN [Concomitant]
     Dosage: UNK
     Route: 048
  13. CALFALEAD [Concomitant]
     Dosage: UNK
     Route: 048
  14. LASIX [Concomitant]
     Indication: GLOMERULONEPHRITIS CHRONIC
     Dosage: UNK
     Route: 048
  15. ALDACTONE A [Concomitant]
     Indication: GLOMERULONEPHRITIS CHRONIC
     Dosage: UNK
     Route: 048
  16. KETOBUN [Concomitant]
     Dosage: UNK
     Route: 048
  17. RHUBARB DRY EXTRACT [Concomitant]
     Dosage: UNK
     Route: 048

REACTIONS (2)
  - Cardiac failure chronic [Recovered/Resolved]
  - Azotaemia [Recovering/Resolving]
